FAERS Safety Report 19988511 (Version 1)
Quarter: 2021Q4

REPORT INFORMATION
  Report Type: Spontaneous
  Country: US (occurrence: US)
  Receive Date: 20211023
  Receipt Date: 20211023
  Transmission Date: 20220304
  Serious: No
  Sender: FDA-Public Use
  Company Number: US-ORGANON-O2110USA001020

PATIENT
  Age: 5 Year
  Sex: Female

DRUGS (3)
  1. SINEMET [Suspect]
     Active Substance: CARBIDOPA\LEVODOPA
     Indication: Rett syndrome
     Dosage: UNK
     Route: 048
  2. PROPRANOLOL [Concomitant]
     Active Substance: PROPRANOLOL HYDROCHLORIDE
     Indication: Rett syndrome
     Dosage: UNK
  3. PRIMIDONE [Concomitant]
     Active Substance: PRIMIDONE
     Indication: Rett syndrome
     Dosage: UNK

REACTIONS (1)
  - Product use in unapproved indication [Unknown]
